FAERS Safety Report 6985394-5 (Version None)
Quarter: 2010Q3

REPORT INFORMATION
  Report Type: 
  Country: None (occurrence: None)
  Receive Date: 20100915
  Receipt Date: 20100903
  Transmission Date: 20110219
  Serious: Yes (Other)
  Sender: FDA-Public Use
  Company Number: US-PFIZER INC-2010112439

PATIENT
  Sex: Female
  Weight: 64.853 kg

DRUGS (5)
  1. LYRICA [Suspect]
     Indication: FIBROMYALGIA
     Dosage: 150 MG, 2X/DAY
     Route: 048
  2. SOMA [Concomitant]
     Indication: MYALGIA
     Dosage: 350 MG, UNK
  3. PROZAC [Concomitant]
     Indication: DEPRESSION
     Dosage: 60 MG, UNK
  4. XANAX [Concomitant]
     Indication: ANXIETY
     Dosage: 0.5 MG, 3X/DAY
  5. LORTAB [Concomitant]
     Dosage: UNK

REACTIONS (4)
  - BLINDNESS TRANSIENT [None]
  - MOVEMENT DISORDER [None]
  - NEUROPATHY PERIPHERAL [None]
  - SPEECH DISORDER [None]
